FAERS Safety Report 7761330-9 (Version None)
Quarter: 2011Q3

REPORT INFORMATION
  Report Type: 
  Country: None (occurrence: None)
  Receive Date: 20110920
  Receipt Date: 20110916
  Transmission Date: 20111222
  Serious: No
  Sender: FDA-Public Use
  Company Number: US-PFIZER INC-2011220486

PATIENT
  Age: 73 Year
  Sex: Female

DRUGS (2)
  1. ADVIL LIQUI-GELS [Suspect]
     Indication: MENISCUS LESION
     Dosage: UNK, DAILY
     Route: 048
  2. ADVIL LIQUI-GELS [Suspect]
     Indication: ARTHRITIS

REACTIONS (4)
  - DIZZINESS [None]
  - BALANCE DISORDER [None]
  - ABDOMINAL DISTENSION [None]
  - GAIT DISTURBANCE [None]
